FAERS Safety Report 6075184-2 (Version None)
Quarter: 2009Q1

REPORT INFORMATION
  Report Type: 
  Country: None (occurrence: None)
  Receive Date: 20090212
  Receipt Date: 20090206
  Transmission Date: 20090719
  Serious: Yes (Hospitalization, Other)
  Sender: FDA-Public Use
  Company Number: US-ASTRAZENECA-2009UW03487

PATIENT
  Age: 76 Year
  Sex: Female
  Weight: 54 kg

DRUGS (13)
  1. NEXIUM [Suspect]
     Route: 048
  2. AGGRENOX [Concomitant]
     Route: 048
  3. ALDRA [Concomitant]
     Indication: SKIN CANCER
     Dosage: EVERY SECOND OR THIRD NIGHT
     Route: 050
  4. ASPIRIN [Concomitant]
     Route: 048
  5. CALCIUM [Concomitant]
     Route: 048
  6. CENTRUM SILVER [Concomitant]
     Route: 048
  7. EVISTA [Concomitant]
     Route: 048
  8. HEMOCYTE PLUS [Concomitant]
     Indication: ANAEMIA
     Route: 048
  9. METOPROLOL [Concomitant]
     Route: 048
  10. REOCYTE PLUS [Concomitant]
     Indication: ANAEMIA
     Route: 048
  11. TOPROL-XL [Concomitant]
     Indication: CARDIAC DISORDER
     Route: 048
  12. TYLENOL (CAPLET) [Concomitant]
     Indication: CARDIAC DISORDER
     Dosage: AT NIGHT
     Route: 048
  13. VYTORIN [Concomitant]
     Indication: BLOOD CHOLESTEROL
     Route: 048

REACTIONS (4)
  - CHEST PAIN [None]
  - DYSPNOEA [None]
  - GASTROOESOPHAGEAL REFLUX DISEASE [None]
  - TRANSIENT ISCHAEMIC ATTACK [None]
